FAERS Safety Report 11862057 (Version 2)
Quarter: 2016Q1

REPORT INFORMATION
  Report Type: Report from Study
  Country: CA (occurrence: CA)
  Receive Date: 20151222
  Receipt Date: 20160122
  Transmission Date: 20160526
  Serious: Yes (Death)
  Sender: FDA-Public Use
  Company Number: CA-ABBVIE-15P-028-1524737-00

PATIENT
  Age: 92 Year
  Sex: Male

DRUGS (1)
  1. LUPRON DEPOT [Suspect]
     Active Substance: LEUPROLIDE ACETATE
     Indication: PROSTATE CANCER
     Route: 030
     Dates: end: 2015

REACTIONS (2)
  - Cellulitis [Fatal]
  - Sepsis [Fatal]

NARRATIVE: CASE EVENT DATE: 20151206
